FAERS Safety Report 15149869 (Version 3)
Quarter: 2019Q2

REPORT INFORMATION
  Report Type: Spontaneous
  Country: US (occurrence: US)
  Receive Date: 20180716
  Receipt Date: 20190401
  Transmission Date: 20190711
  Serious: No
  Sender: FDA-Public Use
  Company Number: US-VANDA PHARMACEUTICALS, INC-2018TASUS002339

PATIENT
  Age: 38 Year
  Sex: Female

DRUGS (1)
  1. HETLIOZ [Suspect]
     Active Substance: TASIMELTEON
     Indication: CIRCADIAN RHYTHM SLEEP DISORDER
     Dosage: 20 MG, BEDTIME
     Route: 048
     Dates: start: 20180531

REACTIONS (5)
  - Intentional overdose [Unknown]
  - Thirst [Unknown]
  - Middle insomnia [Unknown]
  - Nightmare [Unknown]
  - Product dose omission [Unknown]
